FAERS Safety Report 10744761 (Version 1)
Quarter: 2015Q1

REPORT INFORMATION
  Report Type: Spontaneous
  Country: US (occurrence: None)
  Receive Date: 20150120
  Receipt Date: 20150120
  Transmission Date: 20150721
  Serious: No
  Sender: FDA-Public Use
  Company Number: AEGR000854

PATIENT
  Age: 65 Year
  Sex: Male
  Weight: 104.3 kg

DRUGS (11)
  1. VITAMINE 3 (TOCOPHEROL) [Concomitant]
  2. TUDORZA (ACLIDINIUM BROMIDE) [Concomitant]
  3. JUXTAPID [Suspect]
     Active Substance: LOMITAPIDE MESYLATE
     Indication: TYPE IIA HYPERLIPIDAEMIA
     Dates: start: 20130912, end: 201312
  4. ROPINIROLE. [Concomitant]
     Active Substance: ROPINIROLE
  5. ASPIRIN. [Concomitant]
     Active Substance: ASPIRIN
  6. OMEGAS (OMEGA-3 FATTY ACIDS W/OMEGA-6 FATTY ACIDS) [Concomitant]
     Dates: start: 20130912, end: 201312
  7. VENTOILIN (SALBUTAMOL SULFATE) [Concomitant]
  8. ADVAIR DISKUS [Concomitant]
     Active Substance: FLUTICASONE PROPIONATE\SALMETEROL XINAFOATE
  9. EXFORGE (AMLODIPINE BESILATE, VALSARTAN) [Concomitant]
  10. NEXIUM [Concomitant]
     Active Substance: ESOMEPRAZOLE MAGNESIUM
  11. DALIRESP [Concomitant]
     Active Substance: ROFLUMILAST

REACTIONS (2)
  - Musculoskeletal stiffness [None]
  - Pain in extremity [None]

NARRATIVE: CASE EVENT DATE: 201312
